FAERS Safety Report 18711544 (Version 1)
Quarter: 2021Q1

REPORT INFORMATION
  Report Type: Spontaneous
  Country: US (occurrence: US)
  Receive Date: 20210106
  Receipt Date: 20210106
  Transmission Date: 20210419
  Serious: No
  Sender: FDA-Public Use
  Company Number: None

PATIENT
  Age: 14 Year
  Sex: Female
  Weight: 40.5 kg

DRUGS (1)
  1. LUPRON DEPOT [Suspect]
     Active Substance: LEUPROLIDE ACETATE
     Indication: PRECOCIOUS PUBERTY
     Route: 030

REACTIONS (5)
  - Bone disorder [None]
  - Breast atrophy [None]
  - Movement disorder [None]
  - Blood growth hormone abnormal [None]
  - Weight decreased [None]

NARRATIVE: CASE EVENT DATE: 20150612
